FAERS Safety Report 8975062 (Version 2)
Quarter: 2012Q4

REPORT INFORMATION
  Report Type: Report from Study
  Country: US (occurrence: US)
  Receive Date: 20121220
  Receipt Date: 20121227
  Transmission Date: 20130627
  Serious: Yes (Hospitalization, Other)
  Sender: FDA-Public Use
  Company Number: US-ABBOTT-12P-163-1021250-00

PATIENT
  Age: 63 Year
  Sex: Female

DRUGS (10)
  1. HUMIRA [Suspect]
     Indication: CROHN^S DISEASE
     Dates: start: 200805, end: 201209
  2. CRESTOR [Concomitant]
     Indication: BLOOD CHOLESTEROL
  3. LOVAZA [Concomitant]
     Indication: BLOOD CHOLESTEROL
  4. FOLIC ACID [Concomitant]
     Indication: PRODUCT USED FOR UNKNOWN INDICATION
     Dosage: 1 mg daily
  5. BENICAR [Concomitant]
     Indication: BLOOD PRESSURE
     Dosage: 20/125 mg
  6. K-DUR [Concomitant]
     Indication: PRODUCT USED FOR UNKNOWN INDICATION
  7. PRILOSEC [Concomitant]
     Indication: PRODUCT USED FOR UNKNOWN INDICATION
  8. VITAMIN D [Concomitant]
     Indication: PRODUCT USED FOR UNKNOWN INDICATION
  9. CALCIUM [Concomitant]
     Indication: PRODUCT USED FOR UNKNOWN INDICATION
  10. FORTEO [Concomitant]
     Indication: OSTEOPOROSIS
     Route: 050

REACTIONS (3)
  - Fistula [Recovering/Resolving]
  - Crohn^s disease [Recovered/Resolved]
  - Ileocolostomy [Recovering/Resolving]
